FAERS Safety Report 8932715 (Version 1)
Quarter: 2012Q4

REPORT INFORMATION
  Report Type: 
  Country: IT (occurrence: IT)
  Receive Date: 20121128
  Receipt Date: 20121128
  Transmission Date: 20130627
  Serious: Yes (Other)
  Sender: FDA-Public Use
  Company Number: IT-ROXANE LABORATORIES, INC.-2012-RO-02452RO

PATIENT
  Age: 87 Year
  Sex: Male

DRUGS (6)
  1. FUROSEMIDE [Suspect]
  2. FLUVASTATIN [Suspect]
     Dosage: 80 mg
  3. METFORMIN [Suspect]
  4. ALLOPURINOL [Suspect]
  5. ISOBORIDE-5-MONONITRATE [Suspect]
  6. SALMETREROL/FLUTICASONE [Suspect]

REACTIONS (1)
  - Gynaecomastia [Unknown]
